FAERS Safety Report 22175353 (Version 1)
Quarter: 2023Q2

REPORT INFORMATION
  Report Type: Report from Study
  Country: RO (occurrence: RO)
  Receive Date: 20230405
  Receipt Date: 20230405
  Transmission Date: 20230722
  Serious: Yes (Hospitalization)
  Sender: FDA-Public Use
  Company Number: RO-ABBVIE-4714905

PATIENT
  Age: 63 Year
  Sex: Female

DRUGS (3)
  1. OMBITASVIR\PARITAPREVIR\RITONAVIR [Suspect]
     Active Substance: OMBITASVIR\PARITAPREVIR\RITONAVIR
     Indication: Hepatitis C
     Dosage: 2-0-0
     Route: 048
     Dates: start: 20221022, end: 20230113
  2. DASABUVIR [Suspect]
     Active Substance: DASABUVIR
     Indication: Hepatitis C
     Dosage: 1-0-1
     Route: 065
     Dates: start: 20221022, end: 20230113
  3. INSULIN NOS [Concomitant]
     Active Substance: INSULIN NOS
     Indication: Diabetes mellitus
     Dosage: UNKNOWN
     Route: 051
     Dates: start: 202206

REACTIONS (2)
  - Spinal disorder [Recovering/Resolving]
  - Osteoporosis [Not Recovered/Not Resolved]

NARRATIVE: CASE EVENT DATE: 20230111
